FAERS Safety Report 12587911 (Version 2)
Quarter: 2016Q3

REPORT INFORMATION
  Report Type: Spontaneous
  Country: AU (occurrence: AU)
  Receive Date: 20160725
  Receipt Date: 20160805
  Transmission Date: 20161109
  Serious: Yes (Other)
  Sender: FDA-Public Use
  Company Number: AU-AMGEN-AUSSP2016092938

PATIENT
  Sex: Female

DRUGS (1)
  1. REPATHA [Suspect]
     Active Substance: EVOLOCUMAB
     Indication: PRODUCT USED FOR UNKNOWN INDICATION
     Dosage: UNK
     Route: 065

REACTIONS (12)
  - Sleep disorder [Unknown]
  - Headache [Unknown]
  - Confusional state [Unknown]
  - Memory impairment [Unknown]
  - Nasal congestion [Unknown]
  - Hormone level abnormal [Unknown]
  - Palpitations [Unknown]
  - Gastric disorder [Unknown]
  - Asthenia [Unknown]
  - Mood swings [Unknown]
  - Amnesia [Unknown]
  - Myalgia [Unknown]

NARRATIVE: CASE EVENT DATE: 20160504
